FAERS Safety Report 5104236-6 (Version None)
Quarter: 2006Q3

REPORT INFORMATION
  Report Type: 
  Country: None (occurrence: None)
  Receive Date: 20060911
  Receipt Date: 20060901
  Transmission Date: 20061208
  Serious: Yes (Other)
  Sender: FDA-Public Use
  Company Number: MEDI-0004520

PATIENT
  Age: 63 Year
  Sex: Male

DRUGS (4)
  1. ETHYOL [Suspect]
     Dosage: 1 IN 1 D, INTRAVENOUS (NOT OTHERWISE SPECIFIED)
     Route: 042
     Dates: start: 20060320, end: 20060403
  2. DEXAMETHASONE TAB [Suspect]
     Dosage: 4 MG, INTRAVENOUS
  3. ZOFRON(ONDANSETRON HYDROCHLORIDE) [Concomitant]
  4. RADIATION THERAPY [Concomitant]

REACTIONS (2)
  - PRURITUS [None]
  - RASH VESICULAR [None]
